FAERS Safety Report 11127912 (Version 1)
Quarter: 2015Q2

REPORT INFORMATION
  Report Type: Spontaneous
  Country: US (occurrence: US)
  Receive Date: 20150521
  Receipt Date: 20150521
  Transmission Date: 20150821
  Serious: Yes (Death)
  Sender: FDA-Public Use
  Company Number: US-MYLANLABS-2015M1016560

PATIENT

DRUGS (2)
  1. CAPECITABINE. [Suspect]
     Active Substance: CAPECITABINE
     Dosage: ON DAYS 1-14 OF EACH 28-DAY CYCLE
     Route: 048
  2. TEMOZOLOMIDE. [Suspect]
     Active Substance: TEMOZOLOMIDE
     Indication: MULTIPLE ENDOCRINE NEOPLASIA TYPE 1
     Dosage: 150MG/M2/DAY, DIVIDED INTO TWO DAILY DOSES, ON DAYS 10-14 OF EACH 28-DAY CYCLE
     Route: 048

REACTIONS (3)
  - Multiple endocrine neoplasia Type 1 [Fatal]
  - Nausea [Unknown]
  - Diarrhoea [Unknown]
